FAERS Safety Report 15537655 (Version 1)
Quarter: 2018Q4

REPORT INFORMATION
  Report Type: Spontaneous
  Country: US (occurrence: US)
  Receive Date: 20181016
  Receipt Date: 20181016
  Transmission Date: 20190205
  Serious: Yes (Death, Hospitalization)
  Sender: FDA-Public Use
  Company Number: None

PATIENT
  Age: 14 Year
  Sex: Female
  Weight: 43.9 kg

DRUGS (4)
  1. DAUNORUBICIN (82151) [Suspect]
     Active Substance: DAUNORUBICIN
     Dates: start: 20180923, end: 20181008
  2. VINCRISTINE SULFATE. [Suspect]
     Active Substance: VINCRISTINE SULFATE
     Dates: start: 20180923, end: 20181002
  3. ONCASPAR [Suspect]
     Active Substance: PEGASPARGASE
     Dates: start: 20180923, end: 20180926
  4. PREDNISONE. [Suspect]
     Active Substance: PREDNISONE
     Route: 042
     Dates: start: 20180923, end: 20180929

REACTIONS (35)
  - Hyperglycaemia [None]
  - Fluid overload [None]
  - Therapeutic response decreased [None]
  - Coagulation test abnormal [None]
  - Blood phosphorus abnormal [None]
  - Colitis [None]
  - Blood lactic acid increased [None]
  - Acute kidney injury [None]
  - Continuous haemodiafiltration [None]
  - Ammonia increased [None]
  - Liver injury [None]
  - Neutropenia [None]
  - Dyspnoea [None]
  - Portal vein thrombosis [None]
  - Transaminases increased [None]
  - Cardiac arrest [None]
  - Fluid retention [None]
  - Thrombotic microangiopathy [None]
  - Pleural effusion [None]
  - Labile blood pressure [None]
  - Extrasystoles [None]
  - Clostridium difficile colitis [None]
  - Refractoriness to platelet transfusion [None]
  - Systemic candida [None]
  - Septic shock [None]
  - Thrombocytopenia [None]
  - Respiratory distress [None]
  - Blood bilirubin increased [None]
  - Supraventricular tachycardia [None]
  - Blood uric acid abnormal [None]
  - Venoocclusive disease [None]
  - Ascites [None]
  - Acute respiratory failure [None]
  - Candida infection [None]
  - Systemic inflammatory response syndrome [None]

NARRATIVE: CASE EVENT DATE: 20180927
